FAERS Safety Report 18490658 (Version 1)
Quarter: 2020Q4

REPORT INFORMATION
  Report Type: Spontaneous
  Country: US (occurrence: US)
  Receive Date: 20201111
  Receipt Date: 20201111
  Transmission Date: 20210114
  Serious: Yes (Other)
  Sender: FDA-Public Use
  Company Number: None

PATIENT
  Age: 43 Year
  Sex: Female
  Weight: 65.25 kg

DRUGS (7)
  1. PANTOPRAZOLE [Concomitant]
     Active Substance: PANTOPRAZOLE
  2. NUVARING [Suspect]
     Active Substance: ETHINYL ESTRADIOL\ETONOGESTREL
     Indication: HAEMORRHAGE
     Dosage: ?          QUANTITY:1 RING;OTHER FREQUENCY:MONTHLY;?
     Route: 067
     Dates: start: 20200911, end: 20201028
  3. SIMPONI [Concomitant]
     Active Substance: GOLIMUMAB
  4. ZINC. [Concomitant]
     Active Substance: ZINC
  5. VITAMIN D [Concomitant]
     Active Substance: VITAMIN D NOS
  6. NAPROXEN. [Concomitant]
     Active Substance: NAPROXEN
  7. MIDODRINE [Concomitant]
     Active Substance: MIDODRINE

REACTIONS (6)
  - Pain [None]
  - Urinary tract infection [None]
  - Vulvovaginal pain [None]
  - Condition aggravated [None]
  - Psychotic disorder [None]
  - Imprisonment [None]

NARRATIVE: CASE EVENT DATE: 20201023
